FAERS Safety Report 4598151-4 (Version None)
Quarter: 2005Q1

REPORT INFORMATION
  Report Type: 
  Country: None (occurrence: None)
  Receive Date: 20050204
  Receipt Date: 20040322
  Transmission Date: 20050727
  Serious: Yes (Hospitalization)
  Sender: FDA-Public Use
  Company Number: PHEH2004US02793

PATIENT
  Age: 62 Year
  Sex: Male

DRUGS (6)
  1. CLOZARIL [Suspect]
     Indication: SCHIZOPHRENIA
     Dosage: ORAL
     Route: 048
  2. CLOZARIL [Suspect]
     Dosage: ORAL
     Route: 048
  3. COUMADIN [Concomitant]
  4. HYDROCHLOROTHIAZIDE [Concomitant]
  5. ATIVAN [Concomitant]
  6. DEPAKOTE [Concomitant]

REACTIONS (5)
  - AGRANULOCYTOSIS [None]
  - CONVULSION [None]
  - NEUTROPENIA [None]
  - PNEUMONIA [None]
  - PSYCHOTIC DISORDER [None]
